FAERS Safety Report 9692889 (Version 1)
Quarter: 2013Q4

REPORT INFORMATION
  Report Type: Spontaneous
  Country: DE (occurrence: DE)
  Receive Date: 20131118
  Receipt Date: 20131118
  Transmission Date: 20140711
  Serious: Yes (Other)
  Sender: FDA-Public Use
  Company Number: GXKR2013DE003574

PATIENT
  Sex: Male
  Weight: 3.48 kg

DRUGS (4)
  1. CITALOPRAM [Suspect]
     Dosage: MATERNAL DOSE (THROUGHOUT PREGNANCY): 20 [MG/D]
     Route: 064
  2. ACIDO FOLICO [Concomitant]
     Dosage: MATERNAL DOSE (4.6 - 39.GESTATIONAL WEEK): 0.4 [MG/D]
     Route: 064
  3. AZITHROMYCIN [Concomitant]
     Dosage: MATERNAL DOSE (16. - 17. GESTATIONAL WEEK): 500 [MG/D] FOR 3 DAYS
     Route: 064
  4. SPIROPENT [Concomitant]
     Dosage: MATERNAL DOSE (33.4 -36. GESTATIONAL WEEK): 2 X 0.02 [MG/D ]
     Route: 064

REACTIONS (3)
  - Convulsion neonatal [Unknown]
  - Haemolytic anaemia [Recovered/Resolved]
  - Hyperbilirubinaemia neonatal [Recovered/Resolved]
